FAERS Safety Report 20046553 (Version 1)
Quarter: 2021Q4

REPORT INFORMATION
  Report Type: Spontaneous
  Country: US (occurrence: US)
  Receive Date: 20211109
  Receipt Date: 20211109
  Transmission Date: 20220303
  Serious: No
  Sender: FDA-Public Use
  Company Number: US-TEVA-2021-US-1972270

PATIENT
  Sex: Female

DRUGS (2)
  1. IMATINIB [Suspect]
     Active Substance: IMATINIB
     Dosage: 100 MILLIGRAM DAILY; FOR 7 DAYS
     Route: 048
  2. IMATINIB [Suspect]
     Active Substance: IMATINIB
     Dosage: TAKE 2 TABLETS (200MG) BY MOUTH ONCE DAILY AT THE SAME TIME
     Route: 048

REACTIONS (2)
  - Nausea [Unknown]
  - Drug ineffective [Unknown]
